FAERS Safety Report 9661307 (Version 2)
Quarter: 2014Q1

REPORT INFORMATION
  Report Type: Spontaneous
  Country: US (occurrence: US)
  Receive Date: 20131031
  Receipt Date: 20140124
  Transmission Date: 20141002
  Serious: No
  Sender: FDA-Public Use
  Company Number: US-009507513-1310USA014053

PATIENT
  Sex: Female
  Weight: 78.5 kg

DRUGS (2)
  1. OXYTROL FOR WOMEN [Suspect]
     Indication: URINARY INCONTINENCE
     Dosage: 1 DF, Q4D
     Route: 062
     Dates: start: 201308, end: 20130919
  2. OXYTROL FOR WOMEN [Suspect]
     Dosage: 1 DF, Q4D
     Route: 062
     Dates: start: 20130920

REACTIONS (3)
  - Application site pruritus [Unknown]
  - Application site rash [Unknown]
  - Incorrect drug administration duration [Unknown]
